FAERS Safety Report 6149964-9 (Version None)
Quarter: 2009Q2

REPORT INFORMATION
  Report Type: 
  Country: None (occurrence: None)
  Receive Date: 20090409
  Receipt Date: 20090402
  Transmission Date: 20091009
  Serious: Yes (Disabling)
  Sender: FDA-Public Use
  Company Number: A0776623A

PATIENT
  Age: 54 Year
  Sex: Female

DRUGS (8)
  1. ACYCLOVIR [Suspect]
     Indication: GENITAL HERPES
     Dosage: 800MG TWICE PER DAY
     Route: 048
     Dates: start: 20081001, end: 20081101
  2. VALTREX [Suspect]
     Indication: GENITAL HERPES
     Dosage: 1G PER DAY
     Route: 048
     Dates: start: 20081111
  3. COLESTID [Concomitant]
  4. CYTOMEL [Concomitant]
  5. LEVOXYL [Concomitant]
  6. BUPROPION HCL [Concomitant]
  7. B VITAMIN [Concomitant]
  8. PROCRIT [Concomitant]

REACTIONS (5)
  - BLISTER [None]
  - DRUG INEFFECTIVE [None]
  - HERPES VIRUS INFECTION [None]
  - MALABSORPTION [None]
  - RASH [None]
